FAERS Safety Report 22105704 (Version 1)
Quarter: 2023Q1

REPORT INFORMATION
  Report Type: Spontaneous
  Country: DE (occurrence: DE)
  Receive Date: 20230317
  Receipt Date: 20230317
  Transmission Date: 20230418
  Serious: Yes (Other)
  Sender: FDA-Public Use
  Company Number: None

PATIENT
  Age: 21 Year
  Weight: 68 kg

DRUGS (2)
  1. PONVORY [Suspect]
     Active Substance: PONESIMOD
     Indication: Relapsing-remitting multiple sclerosis
     Dosage: 20MG TGL.
     Route: 048
     Dates: start: 20221209, end: 20230208
  2. TESTOSTERONE PROPIONATE [Concomitant]
     Active Substance: TESTOSTERONE PROPIONATE
     Indication: Transgender hormonal therapy
     Route: 030

REACTIONS (3)
  - Electrocardiogram T wave inversion [Recovered/Resolved]
  - SI QIII TIII pattern [Recovered/Resolved]
  - Dyspnoea exertional [Recovered/Resolved]

NARRATIVE: CASE EVENT DATE: 20230118
